FAERS Safety Report 5126907-8 (Version None)
Quarter: 2006Q4

REPORT INFORMATION
  Report Type: 
  Country: None (occurrence: None)
  Receive Date: 20061011
  Receipt Date: 20061011
  Transmission Date: 20070319
  Serious: Yes (Hospitalization)
  Sender: FDA-Public Use
  Company Number: None

PATIENT
  Age: 45 Year
  Sex: Female
  Weight: 47.6277 kg

DRUGS (104)
  1. ABRAXANE [Suspect]
     Indication: OVARIAN CANCER
     Dosage: 145.0MG/M2 D1,D8,D15 042 OVER (30MINS)
     Dates: start: 20060330
  2. ABRAXANE [Suspect]
     Indication: RECURRENT CANCER
     Dosage: 145.0MG/M2 D1,D8,D15 042 OVER (30MINS)
     Dates: start: 20060330
  3. CARBOPLATIN [Suspect]
     Indication: OVARIAN CANCER
     Dosage: 465MG/M2 D1 042   (OVER 1 HOUR)
     Dates: start: 20060315
  4. CARBOPLATIN [Suspect]
     Indication: RECURRENT CANCER
     Dosage: 465MG/M2 D1 042   (OVER 1 HOUR)
     Dates: start: 20060315
  5. SOD CL [Concomitant]
  6. HEPARIN SODIUM [Concomitant]
  7. AMITRIPTYLINE (ELAVIL) [Concomitant]
  8. PANTOPRAZOLE (PROTONIX) [Concomitant]
  9. . [Concomitant]
  10. LASIX [Concomitant]
  11. D5/0.45NS-KCL20MEQ [Concomitant]
  12. ATIVAN [Concomitant]
  13. ZOFRAN [Concomitant]
  14. NALOXONE (NARCAN) [Concomitant]
  15. DIPHENHYDRAMINE (BENADRYL) [Concomitant]
  16. AMBIEN [Concomitant]
  17. HYDROMORPHONE HCL [Concomitant]
  18. OXYCODONE-ACET (ROXICET) [Concomitant]
  19. OXYCODONE (PERCOCET) [Concomitant]
  20. PROTONIX [Concomitant]
  21. DULCOLOX SUPP [Concomitant]
  22. SYRINGE SOD CL 0.9% [Concomitant]
  23. LEVAQUIN [Concomitant]
  24. COUMADIN [Concomitant]
  25. VIVELLE [Concomitant]
  26. DIPHENHYDRAMINE (BENADRYL) INTRAVENOUS [Concomitant]
  27. DIPHENHYDRAMINE (BENADRYL) ORAL [Concomitant]
  28. ACTAMINOPHEN (TYLENOL):ORAL [Concomitant]
  29. ACTAMINOPHEN (TYLENOL): RECTAL [Concomitant]
  30. METOCLOPRAMID (REGLAN) [Concomitant]
  31. ONDANSETRON HCL INJECTION (ZOFRAN) [Concomitant]
  32. OXYCODONE (ROXICET) [Concomitant]
  33. DEXTROSE [Concomitant]
  34. KCL TAB [Concomitant]
  35. POTASSIUM [Concomitant]
  36. LOVENOX [Concomitant]
  37. BLD GLUCOSE [Concomitant]
  38. HYPER AD CENTR [Concomitant]
  39. FAT EMULSION [Concomitant]
  40. PEPCID [Concomitant]
  41. ALTRPLASE RECOMB (TPA) [Concomitant]
  42. SYRINGE 60ML [Concomitant]
  43. PROMTHAZINE (PHENERGAN) [Concomitant]
  44. DILAUDID [Concomitant]
  45. SOD CL 0.9%: (ZOFRAN) [Concomitant]
  46. HEPARIN (HEPARIN FLUSH) [Concomitant]
  47. TRIAMTERENE (DYAZIDE) [Concomitant]
  48. D5/0.45NACL [Concomitant]
  49. ACETAMINOPHEN (TYLENOL) ORAL [Concomitant]
  50. ACETAMINOPHEN (TYLENOL) SUPPOSITORY [Concomitant]
  51. PROMETHAZINE (PHENERGAN) [Concomitant]
  52. ALBUMIN (HUMAN) [Concomitant]
  53. LEVAQUIN [Concomitant]
  54. LIPIDS [Concomitant]
  55. TPN [Concomitant]
  56. DIPHENHYDRAMINE (BENDRYL) [Concomitant]
  57. OXCODONE (ROXICET) [Concomitant]
  58. OXCODONE (PERCOCET) [Concomitant]
  59. SYRINGE 60ML (DILAUDID) [Concomitant]
  60. ESTRADIOL PATCH (VIVELLE) [Concomitant]
  61. HYPERAL AD CENTR [Concomitant]
  62. 15 MMOL/NAPHOS [Concomitant]
  63. ALOE VERA OINTMENT [Concomitant]
  64. MORPHINE [Concomitant]
  65. ARTIF TEARS 0.5% SOLUTION [Concomitant]
  66. PIPERACILLIN-TAZ (ZOSYN) [Concomitant]
  67. VANCOMYCIN [Concomitant]
  68. LORAZEPAM INJECTION (ATIVAN) [Concomitant]
  69. TYLENOL SUPPOSITORY [Concomitant]
  70. HYDROMORPHONE INJECTION [Concomitant]
  71. PHENERGAN [Concomitant]
  72. CONCIDES [Concomitant]
  73. MAZZIDE [Concomitant]
  74. COUMDIN [Concomitant]
  75. ACCUV BID [Concomitant]
  76. LOREAZEPAM (ATIVAN) [Concomitant]
  77. FENTANYL TRANSDERMAL SYSTEM [Concomitant]
  78. REGLAN [Concomitant]
  79. OXYCODONE-ACET [Concomitant]
  80. ESTRADIOL (VIVELLE) [Concomitant]
  81. D5/045NS-KCL MEQ [Concomitant]
  82. PIPERACILLIN TAZ [Concomitant]
  83. VANCOMYCIN [Concomitant]
  84. ZOSYN [Concomitant]
  85. GEMTAMICIN [Concomitant]
  86. DAPTOMYCIN [Concomitant]
  87. ACETAMINOPHEN TABLET (TYLENOL) [Concomitant]
  88. PREMED WITH BENADRYL [Concomitant]
  89. MAALOX FAST BLOCKER [Concomitant]
  90. TROUGH [Concomitant]
  91. AMPICILLIN SODIUM [Concomitant]
  92. PANTOPRAZOLE SODIUM [Concomitant]
  93. ESTRADEM PATCH [Concomitant]
  94. DECADRON [Concomitant]
  95. TAGAMET [Concomitant]
  96. EMMEND [Concomitant]
  97. DOXIL [Concomitant]
  98. ZOLPIDEM TARTRATE [Concomitant]
  99. FAT EMULSION 20% [Concomitant]
  100. HEPARIN LOCK-FLUSH [Concomitant]
  101. NEUPOGEN [Concomitant]
  102. ARANESP [Concomitant]
  103. ABRAXANE [Concomitant]
  104. CARBOPLATIN [Concomitant]

REACTIONS (2)
  - ABDOMINAL PAIN [None]
  - ASCITES [None]
